FAERS Safety Report 5279926-5 (Version None)
Quarter: 2007Q1

REPORT INFORMATION
  Report Type: 
  Country: None (occurrence: None)
  Receive Date: 20070327
  Receipt Date: 20070327
  Transmission Date: 20070707
  Serious: Yes (Other)
  Sender: FDA-Public Use
  Company Number: None

PATIENT
  Age: 41 Year
  Sex: Female
  Weight: 72.5755 kg

DRUGS (2)
  1. FOLLISTIM [Suspect]
     Indication: INFERTILITY FEMALE
     Dosage: 150 UNITS DAILY DAYS 2 -12 SQ
     Route: 058
     Dates: start: 20061128, end: 20070204
  2. GANARELIX 250MICROGM/0.5ML ORGANON USA [Suspect]
     Indication: PREGNANCY
     Dosage: 250 DAILY DAYS 11-12 SQ
     Route: 058
     Dates: start: 20061128, end: 20070204

REACTIONS (1)
  - PUNCTATE KERATITIS [None]
